FAERS Safety Report 8391658-3 (Version None)
Quarter: 2012Q2

REPORT INFORMATION
  Report Type: 
  Country: None (occurrence: None)
  Receive Date: 20120529
  Receipt Date: 20120522
  Transmission Date: 20120825
  Serious: Yes (Other)
  Sender: FDA-Public Use
  Company Number: NL-JNJFOC-20120518011

PATIENT
  Sex: Male

DRUGS (4)
  1. IMODIUM [Suspect]
     Indication: ABDOMINAL PAIN UPPER
     Route: 048
  2. TRAMADOL HCL [Concomitant]
     Route: 065
  3. IMODIUM [Suspect]
     Indication: DIARRHOEA
     Route: 048
  4. ACETAMINOPHEN [Concomitant]
     Route: 065

REACTIONS (4)
  - INCORRECT DOSE ADMINISTERED [None]
  - INTENTIONAL DRUG MISUSE [None]
  - GAMMA-GLUTAMYLTRANSFERASE INCREASED [None]
  - ALANINE AMINOTRANSFERASE INCREASED [None]
